FAERS Safety Report 10397520 (Version 1)
Quarter: 2014Q1

REPORT INFORMATION
  Report Type: Spontaneous
  Country: US (occurrence: None)
  Receive Date: 20130815
  Receipt Date: 20130815
  Transmission Date: 20141002
  Serious: Yes (Other)
  Sender: FDA-Public Use
  Company Number: ADR-2012-01544

PATIENT
  Sex: Female

DRUGS (5)
  1. BACLOFEN INTRATHECAL (BACLOFEN INJECTION) [Suspect]
     Indication: CANCER PAIN
  2. BACLOFEN INTRATHECAL (BACLOFEN INJECTION) [Suspect]
  3. DILAUDID (HYDROMORPHONE [Concomitant]
  4. BUPIVACAINE [Concomitant]
  5. DROPERIDOL [Concomitant]

REACTIONS (4)
  - Nausea [None]
  - Hyperhidrosis [None]
  - Tremor [None]
  - Drug withdrawal syndrome [None]
